FAERS Safety Report 18880213 (Version 1)
Quarter: 2021Q1

REPORT INFORMATION
  Report Type: Other
  Country: DE (occurrence: DE)
  Receive Date: 20210211
  Receipt Date: 20210211
  Transmission Date: 20210420
  Serious: Yes (Other)
  Sender: FDA-Public Use
  Company Number: DE-ROCHE-2747302

PATIENT
  Age: 61 Year
  Sex: Female
  Weight: 63 kg

DRUGS (5)
  1. KEVATRIL [Concomitant]
     Active Substance: GRANISETRON HYDROCHLORIDE
     Route: 042
     Dates: start: 20200729
  2. ATEZOLIZUMAB. [Suspect]
     Active Substance: ATEZOLIZUMAB
     Indication: BREAST CANCER
     Route: 041
     Dates: start: 20200729
  3. MACROGOL [Concomitant]
     Active Substance: POLYETHYLENE GLYCOLS
     Route: 048
     Dates: start: 202008, end: 20200811
  4. NAB?PACLITAXEL [Suspect]
     Active Substance: PACLITAXEL
     Indication: BREAST CANCER
     Route: 042
     Dates: start: 20200729
  5. LEFAX (GERMANY) [Concomitant]
     Route: 048
     Dates: start: 202008, end: 20200811

REACTIONS (4)
  - Syncope [Recovered/Resolved]
  - Haematochezia [Unknown]
  - Ear pain [Recovered/Resolved]
  - Immune-mediated hepatitis [Not Recovered/Not Resolved]

NARRATIVE: CASE EVENT DATE: 202010
